FAERS Safety Report 7961726-6 (Version None)
Quarter: 2011Q4

REPORT INFORMATION
  Report Type: 
  Country: None (occurrence: None)
  Receive Date: 20111202
  Receipt Date: 20111202
  Transmission Date: 20120403
  Serious: Yes (Other)
  Sender: FDA-Public Use
  Company Number: None

PATIENT
  Sex: Male
  Weight: 74.8435 kg

DRUGS (7)
  1. AMLODIPINE [Concomitant]
  2. LORAZEPAM [Concomitant]
  3. ZYPREXA [Concomitant]
  4. TRILEPTAL [Suspect]
     Indication: EPILEPSY
     Dosage: MG 2X/DAY (Q12H) P.O.
     Route: 048
  5. LISINOPRIL [Concomitant]
  6. CITALOPRAM [Concomitant]
  7. VITAMIN D (CAPSULES) [Concomitant]

REACTIONS (7)
  - DEPRESSION [None]
  - PRURITUS [None]
  - RECTAL HAEMORRHAGE [None]
  - ASTHENIA [None]
  - DECREASED APPETITE [None]
  - MOOD SWINGS [None]
  - CONVULSION [None]
